FAERS Safety Report 6191266-9 (Version None)
Quarter: 2009Q2

REPORT INFORMATION
  Report Type: 
  Country: None (occurrence: None)
  Receive Date: 20090513
  Receipt Date: 20090513
  Transmission Date: 20091009
  Serious: Yes (Life-Threatening, Hospitalization, Disabling)
  Sender: FDA-Public Use
  Company Number: None

PATIENT
  Age: 61 Year
  Sex: Male
  Weight: 102.0593 kg

DRUGS (2)
  1. INDOMETHACIN [Suspect]
     Indication: INFLAMMATION
     Dates: start: 20050801
  2. INDOMETHACIN [Suspect]
     Indication: INFLAMMATION
     Dates: start: 20060301

REACTIONS (2)
  - GASTROINTESTINAL DISORDER [None]
  - HAEMATOCHEZIA [None]
